FAERS Safety Report 18292117 (Version 1)
Quarter: 2020Q3

REPORT INFORMATION
  Report Type: Spontaneous
  Country: US (occurrence: US)
  Receive Date: 20200921
  Receipt Date: 20200921
  Transmission Date: 20201103
  Serious: No
  Sender: FDA-Public Use
  Company Number: US-JAZZ-JPI-P-010396

PATIENT
  Sex: Male
  Weight: 96.82 kg

DRUGS (8)
  1. XYREM [Suspect]
     Active Substance: SODIUM OXYBATE
     Indication: NARCOLEPSY
     Route: 048
     Dates: start: 20070322, end: 200907
  2. ZOLPIDEM TARTRATE. [Concomitant]
     Active Substance: ZOLPIDEM TARTRATE
  3. TESTOSTERONE. [Concomitant]
     Active Substance: TESTOSTERONE
  4. XYREM [Suspect]
     Active Substance: SODIUM OXYBATE
     Indication: FIBROMYALGIA
     Dosage: 4.5 GRAM, BID
     Route: 048
     Dates: start: 201003, end: 201007
  5. MODAFINIL. [Concomitant]
     Active Substance: MODAFINIL
  6. METHYLPHENIDATE. [Concomitant]
     Active Substance: METHYLPHENIDATE
  7. ANASTROZOLE. [Concomitant]
     Active Substance: ANASTROZOLE
  8. XYREM [Suspect]
     Active Substance: SODIUM OXYBATE
     Dosage: 4.5 GRAM, BID
     Route: 048
     Dates: start: 201009

REACTIONS (7)
  - Peripheral swelling [Unknown]
  - Candida infection [Unknown]
  - Rash macular [Unknown]
  - Off label use [Unknown]
  - Initial insomnia [Not Recovered/Not Resolved]
  - Chondrocalcinosis pyrophosphate [Unknown]
  - Weight increased [Recovering/Resolving]

NARRATIVE: CASE EVENT DATE: 2007
